FAERS Safety Report 17560996 (Version 1)
Quarter: 2020Q1

REPORT INFORMATION
  Report Type: Spontaneous
  Country: US (occurrence: US)
  Receive Date: 20200319
  Receipt Date: 20200319
  Transmission Date: 20200409
  Serious: Yes (Other)
  Sender: FDA-Public Use
  Company Number: US-MYLANLABS-2020M1029535

PATIENT
  Age: 30 Year
  Sex: Male

DRUGS (1)
  1. FENTANYL. [Suspect]
     Active Substance: FENTANYL
     Indication: PRODUCT USED FOR UNKNOWN INDICATION
     Dosage: THERE WERE NEEDLE TRACK MARKS ON BOTH FOREARMS, ELBOWS, AND UPPER ARMS
     Route: 065

REACTIONS (2)
  - Respiratory depression [Recovered/Resolved]
  - Accidental overdose [Recovered/Resolved]
